FAERS Safety Report 16706676 (Version 1)
Quarter: 2019Q3

REPORT INFORMATION
  Report Type: Spontaneous
  Country: US (occurrence: US)
  Receive Date: 20190815
  Receipt Date: 20190815
  Transmission Date: 20191004
  Serious: No
  Sender: FDA-Public Use
  Company Number: US-PACIRA-201900105

PATIENT

DRUGS (1)
  1. EXPAREL [Suspect]
     Active Substance: BUPIVACAINE
     Indication: POSTOPERATIVE ANALGESIA
     Dosage: 60 ML (266 MG), SINGLE DOSE

REACTIONS (10)
  - Vomiting [Unknown]
  - Urinary retention [Unknown]
  - Headache [Unknown]
  - Hypobarism [Unknown]
  - Oxygen saturation decreased [Unknown]
  - Hypotension [Unknown]
  - Pruritus [Unknown]
  - Nausea [Unknown]
  - Constipation [Unknown]
  - Pyrexia [Unknown]
